FAERS Safety Report 15726612 (Version 1)
Quarter: 2018Q4

REPORT INFORMATION
  Report Type: Spontaneous
  Country: US (occurrence: US)
  Receive Date: 20181217
  Receipt Date: 20181217
  Transmission Date: 20190205
  Serious: No
  Sender: FDA-Public Use
  Company Number: US-NOVOPROD-585245

PATIENT
  Sex: Female

DRUGS (1)
  1. LEVEMIR [Suspect]
     Active Substance: INSULIN DETEMIR
     Indication: PRODUCT USED FOR UNKNOWN INDICATION
     Dosage: 10 UNITS IN AM
     Route: 058
     Dates: start: 2018

REACTIONS (5)
  - Fungal infection [Unknown]
  - Pain [Unknown]
  - Asthenia [Unknown]
  - Dizziness [Unknown]
  - Condition aggravated [Unknown]

NARRATIVE: CASE EVENT DATE: 2018
